FAERS Safety Report 6660660-1 (Version None)
Quarter: 2010Q1

REPORT INFORMATION
  Report Type: 
  Country: None (occurrence: None)
  Receive Date: 20100326
  Receipt Date: 20100315
  Transmission Date: 20100710
  Serious: Yes (Hospitalization)
  Sender: FDA-Public Use
  Company Number: B0641345A

PATIENT
  Age: 64 Year
  Sex: Male

DRUGS (5)
  1. AMOXICILLIN TRIHYDRATE [Suspect]
     Indication: DYSPNOEA
     Dosage: ORAL
     Route: 048
  2. BRONCHODILATOR [Concomitant]
  3. ASPIRIN [Concomitant]
  4. STATINS [Concomitant]
  5. PHENYTOIN [Concomitant]

REACTIONS (8)
  - ANAPHYLACTIC SHOCK [None]
  - CHEST PAIN [None]
  - GENERALISED ERYTHEMA [None]
  - KOUNIS SYNDROME [None]
  - NAUSEA [None]
  - RASH [None]
  - URTICARIA [None]
  - VOMITING [None]
